FAERS Safety Report 15566332 (Version 1)
Quarter: 2018Q4

REPORT INFORMATION
  Report Type: Spontaneous
  Country: IL (occurrence: IL)
  Receive Date: 20181030
  Receipt Date: 20181030
  Transmission Date: 20190205
  Serious: Yes (Hospitalization, Other)
  Sender: FDA-Public Use
  Company Number: IL-PFIZER INC-2018437247

PATIENT
  Age: 71 Year
  Sex: Female

DRUGS (2)
  1. AROMASIN [Suspect]
     Active Substance: EXEMESTANE
     Indication: BREAST CANCER METASTATIC
     Dosage: 25 MG, 1X/DAY
     Dates: end: 201808
  2. AFINITOR [Suspect]
     Active Substance: EVEROLIMUS
     Indication: BREAST CANCER METASTATIC
     Dosage: UNK
     Dates: end: 201808

REACTIONS (7)
  - Melaena [Unknown]
  - Hypochromic anaemia [Unknown]
  - Gastrointestinal ulcer [Unknown]
  - Renal failure [Unknown]
  - Weight decreased [Unknown]
  - Dysphagia [Unknown]
  - Nausea [Recovered/Resolved]
